FAERS Safety Report 14293736 (Version 2)
Quarter: 2018Q4

REPORT INFORMATION
  Report Type: Spontaneous
  Country: US (occurrence: US)
  Receive Date: 20171216
  Receipt Date: 20181106
  Transmission Date: 20190204
  Serious: Yes (Hospitalization, Other)
  Sender: FDA-Public Use
  Company Number: US-ACCORD-061862

PATIENT
  Age: 43 Year
  Sex: Male

DRUGS (2)
  1. MYCOPHENOLIC ACID. [Suspect]
     Active Substance: MYCOPHENOLIC ACID
     Indication: DERMATITIS CONTACT
  2. PREDNISONE. [Suspect]
     Active Substance: PREDNISONE
     Indication: DERMATITIS CONTACT
     Dosage: 40 AND 60 MG
     Route: 048

REACTIONS (7)
  - Pneumonia [Unknown]
  - Off label use [Unknown]
  - Molluscum contagiosum [Unknown]
  - Cellulitis [Recovering/Resolving]
  - Secondary immunodeficiency [Recovering/Resolving]
  - Lymphopenia [Recovering/Resolving]
  - Infection [Recovered/Resolved]
